FAERS Safety Report 10554239 (Version 1)
Quarter: 2014Q4

REPORT INFORMATION
  Report Type: Spontaneous
  Country: US (occurrence: None)
  Receive Date: 20141028
  Receipt Date: 20141028
  Transmission Date: 20150529
  Serious: Yes (Other)
  Sender: FDA-Public Use
  Company Number: KAD201410-001318

PATIENT
  Sex: Female

DRUGS (2)
  1. RIBAVIRIN. [Suspect]
     Active Substance: RIBAVIRIN
     Indication: HEPATITIS C
  2. PEGASYS (PEGINTERFERON ALFA-2A) (PEGINTERFERON ALFA-2A) [Concomitant]

REACTIONS (3)
  - Malaise [None]
  - Hepatic cancer [None]
  - Fatigue [None]
